FAERS Safety Report 9902432 (Version 2)
Quarter: 2014Q1

REPORT INFORMATION
  Report Type: Spontaneous
  Country: US (occurrence: US)
  Receive Date: 20140217
  Receipt Date: 20140217
  Transmission Date: 20141002
  Serious: No
  Sender: FDA-Public Use
  Company Number: US-GILEAD-2011-0047076

PATIENT
  Age: 39 Year
  Sex: Female

DRUGS (4)
  1. LETAIRIS [Suspect]
     Indication: PULMONARY HYPERTENSION
     Dosage: 10 MG, UNK
     Route: 048
     Dates: start: 20080930
  2. LETAIRIS [Suspect]
     Indication: CASTLEMAN^S DISEASE
  3. LASIX                              /00032601/ [Concomitant]
  4. POTASSIUM [Concomitant]

REACTIONS (1)
  - Swelling [Not Recovered/Not Resolved]
